FAERS Safety Report 21560234 (Version 1)
Quarter: 2022Q4

REPORT INFORMATION
  Report Type: Spontaneous
  Country: DE (occurrence: DE)
  Receive Date: 20221107
  Receipt Date: 20221107
  Transmission Date: 20230113
  Serious: Yes (Hospitalization)
  Sender: FDA-Public Use
  Company Number: DE-ADRED-07247-01

PATIENT
  Age: 75 Year
  Sex: Female
  Weight: 68 kg

DRUGS (9)
  1. FUROSEMIDE [Suspect]
     Active Substance: FUROSEMIDE
     Indication: Product used for unknown indication
     Dosage: 40 MG, 1-0-0-0, TABLET
     Route: 048
  2. METOPROLOL [Concomitant]
     Active Substance: METOPROLOL
     Dosage: 47.5 MG, 0-1-0-0, RETARD-TABLET
     Route: 048
  3. PANTOPRAZOLE SODIUM [Concomitant]
     Active Substance: PANTOPRAZOLE SODIUM
     Dosage: 40 MG, 1-0-1-0, TABLET
     Route: 048
  4. AMOXICILLIN [Concomitant]
     Active Substance: AMOXICILLIN
     Dosage: 1000 MG, 1-0-1-0, TABLET
     Route: 048
  5. SODIUM PERCHLORATE [Concomitant]
     Active Substance: SODIUM PERCHLORATE
     Dosage: 30 MG/ML, 20-20-20-0, TROPFEN
     Route: 048
  6. CLARITHROMYCIN [Concomitant]
     Active Substance: CLARITHROMYCIN
     Dosage: 500 MG, 1-0-1-0, TABLET
     Route: 048
  7. FLECAINIDA [Concomitant]
     Dosage: 50 MG, 1-0-1-0, TABLET
     Route: 048
  8. ASPIRIN [Concomitant]
     Active Substance: ASPIRIN
     Dosage: 300 MG, 0-1-0-0, TABLET
     Route: 048
  9. SIMVASTATIN [Concomitant]
     Active Substance: SIMVASTATIN
     Dosage: 20 MG, 0-0-1-0, TABLET
     Route: 048

REACTIONS (13)
  - Patella fracture [Unknown]
  - Weight decreased [Unknown]
  - Constipation [Unknown]
  - Fall [Unknown]
  - Dyspnoea [Unknown]
  - Decreased appetite [Unknown]
  - Atrial fibrillation [Unknown]
  - Arthralgia [Unknown]
  - Dyspnoea exertional [Unknown]
  - Product prescribing error [Unknown]
  - Fatigue [Unknown]
  - Hyponatraemia [Unknown]
  - Hypokalaemia [Unknown]
